FAERS Safety Report 20451038 (Version 2)
Quarter: 2022Q1

REPORT INFORMATION
  Report Type: Spontaneous
  Country: US (occurrence: US)
  Receive Date: 20220209
  Receipt Date: 20220314
  Transmission Date: 20220423
  Serious: No
  Sender: FDA-Public Use
  Company Number: US-SANOFI-00963104

PATIENT
  Age: 49 Year
  Sex: Female

DRUGS (19)
  1. DUPIXENT [Suspect]
     Active Substance: DUPILUMAB
     Indication: Nasal polyps
     Dosage: 300 MG, QOW
     Route: 058
     Dates: start: 20211225
  2. VITAMIN D2 [Concomitant]
     Active Substance: ERGOCALCIFEROL
  3. VITAMIN B-1 [THIAMINE MONONITRATE] [Concomitant]
  4. PREDNISONE [Concomitant]
     Active Substance: PREDNISONE
  5. MELATONIN [Concomitant]
     Active Substance: MELATONIN
  6. MONTELUKAST SODIUM [Concomitant]
     Active Substance: MONTELUKAST SODIUM
  7. ZYRTEC [Concomitant]
     Active Substance: CETIRIZINE HYDROCHLORIDE
  8. ASPIRIN [Concomitant]
     Active Substance: ASPIRIN
  9. FIBER [Concomitant]
     Active Substance: PSYLLIUM HUSK
  10. CODEINE PHOSPHATE [Concomitant]
     Active Substance: CODEINE PHOSPHATE
  11. AUGMENTIN [Concomitant]
     Active Substance: AMOXICILLIN\CLAVULANATE POTASSIUM
  12. SULFACETAMIDE [Concomitant]
     Active Substance: SULFACETAMIDE
  13. BACTRIM DS [Concomitant]
     Active Substance: SULFAMETHOXAZOLE\TRIMETHOPRIM
  14. DOXYCYCLINE HYCLATE [Concomitant]
     Active Substance: DOXYCYCLINE HYCLATE
  15. AZITHROMYCIN [Concomitant]
     Active Substance: AZITHROMYCIN
  16. VITAMINS NOS [Concomitant]
     Active Substance: VITAMINS
  17. FLONASE ALLERGY RELIEF [Concomitant]
     Active Substance: FLUTICASONE PROPIONATE
  18. SULFAMETHOXAZOLE [Concomitant]
     Active Substance: SULFAMETHOXAZOLE
  19. MORPHINE [Concomitant]
     Active Substance: MORPHINE

REACTIONS (5)
  - SARS-CoV-2 test positive [Unknown]
  - Nasal congestion [Unknown]
  - Increased viscosity of upper respiratory secretion [Unknown]
  - Therapy interrupted [Unknown]
  - Product use in unapproved indication [Unknown]

NARRATIVE: CASE EVENT DATE: 20211225
